FAERS Safety Report 8158585-8 (Version None)
Quarter: 2012Q1

REPORT INFORMATION
  Report Type: 
  Country: None (occurrence: None)
  Receive Date: 20120223
  Receipt Date: 20120215
  Transmission Date: 20120608
  Serious: Yes (Hospitalization, Other)
  Sender: FDA-Public Use
  Company Number: US-BAYER-201037034NA

PATIENT
  Age: 25 Year
  Sex: Female
  Weight: 98 kg

DRUGS (9)
  1. XANAX [Concomitant]
     Indication: ANXIETY
     Dosage: UNK UNK, BID
     Route: 048
  2. METFORMIN HCL [Concomitant]
     Indication: POLYCYSTIC OVARIES
     Dosage: UNK UNK, BID
     Route: 048
  3. PROMETHAZINE [Concomitant]
     Dosage: UNK
     Dates: start: 20081001
  4. DROSPIRENONE AND ETHINYL ESTRADIOL [Suspect]
     Indication: PRODUCT USED FOR UNKNOWN INDICATION
     Dosage: UNK
     Dates: start: 20080701, end: 20081001
  5. ROXICODONE [Concomitant]
     Indication: BACK PAIN
     Dosage: UNK UNK, QID
  6. NUVARING [Concomitant]
  7. CARISOPRODOL [Concomitant]
     Dosage: UNK
     Dates: start: 20081017
  8. YASMIN [Suspect]
     Indication: PRODUCT USED FOR UNKNOWN INDICATION
     Dosage: UNK
     Dates: start: 20061109, end: 20070701
  9. COPAXONE [Concomitant]
     Indication: MULTIPLE SCLEROSIS
     Dosage: 20 MG, QD

REACTIONS (5)
  - EMOTIONAL DISTRESS [None]
  - SUBCLAVIAN VEIN THROMBOSIS [None]
  - VENA CAVA THROMBOSIS [None]
  - CENTRAL VENOUS CATHETER REMOVAL [None]
  - PAIN [None]
